FAERS Safety Report 7291128-X (Version None)
Quarter: 2011Q1

REPORT INFORMATION
  Report Type: 
  Country: None (occurrence: None)
  Receive Date: 20110214
  Receipt Date: 20110209
  Transmission Date: 20110831
  Serious: Yes (Other)
  Sender: FDA-Public Use
  Company Number: US-PFIZER INC-2011029589

PATIENT
  Sex: Male

DRUGS (1)
  1. RELISTOR [Suspect]
     Dosage: UNK

REACTIONS (5)
  - EYE INFECTION [None]
  - ABDOMINAL PAIN UPPER [None]
  - WEIGHT DECREASED [None]
  - CONDITION AGGRAVATED [None]
  - DECREASED APPETITE [None]
